FAERS Safety Report 4648370-3 (Version None)
Quarter: 2005Q2

REPORT INFORMATION
  Report Type: 
  Country: None (occurrence: None)
  Receive Date: 20050427
  Receipt Date: 20050413
  Transmission Date: 20051028
  Serious: Yes (Hospitalization)
  Sender: FDA-Public Use
  Company Number: US_0504115484

PATIENT
  Age: 88 Year
  Sex: Female

DRUGS (4)
  1. FORTEO [Suspect]
     Indication: OSTEOPOROSIS
     Dosage: 20 UG
     Dates: start: 20050320, end: 20050323
  2. MELOXICAM [Concomitant]
  3. CALCIUM GLUCONATE [Concomitant]
  4. LOSARTAN POTASSIUM [Concomitant]

REACTIONS (3)
  - CEREBRAL HAEMORRHAGE [None]
  - HEADACHE [None]
  - HYPERTENSION [None]
